FAERS Safety Report 7945222-8 (Version None)
Quarter: 2011Q4

REPORT INFORMATION
  Report Type: 
  Country: None (occurrence: None)
  Receive Date: 20111129
  Receipt Date: 20110427
  Transmission Date: 20120403
  Serious: No
  Sender: FDA-Public Use
  Company Number: US-GLAXOSMITHKLINE-A0925545A

PATIENT
  Sex: Female

DRUGS (2)
  1. FLOVENT [Suspect]
     Dosage: 110MCG UNKNOWN
     Route: 055
  2. FLOVENT [Suspect]
     Indication: PRODUCT USED FOR UNKNOWN INDICATION

REACTIONS (3)
  - DRUG HYPERSENSITIVITY [None]
  - DRUG DISPENSING ERROR [None]
  - COUGH [None]
